FAERS Safety Report 16017363 (Version 1)
Quarter: 2019Q1

REPORT INFORMATION
  Report Type: Spontaneous
  Country: CO (occurrence: CO)
  Receive Date: 20190228
  Receipt Date: 20190228
  Transmission Date: 20190418
  Serious: Yes (Death, Life-Threatening, Hospitalization, Other)
  Sender: FDA-Public Use
  Company Number: CO-AMGEN-COLSP2019029749

PATIENT
  Age: 41 Year
  Sex: Male
  Weight: 67.8 kg

DRUGS (9)
  1. FLUCONAZOLE. [Concomitant]
     Active Substance: FLUCONAZOLE
     Dosage: UNK
  2. METHOTREXATE. [Concomitant]
     Active Substance: METHOTREXATE
     Dosage: UNK
     Route: 037
     Dates: start: 20190128
  3. NORMAL SALINE [Concomitant]
     Active Substance: SODIUM CHLORIDE
     Dosage: UNK
     Route: 042
  4. DEXAMETHASONE. [Concomitant]
     Active Substance: DEXAMETHASONE
     Indication: PREMEDICATION
     Dosage: 24 MG, UNK
     Route: 042
     Dates: start: 20190131
  5. CYTARABINE. [Concomitant]
     Active Substance: CYTARABINE
     Dosage: UNK
     Route: 037
     Dates: start: 20190128
  6. ALLOPURINOL. [Concomitant]
     Active Substance: ALLOPURINOL
     Dosage: UNK
  7. RANITIDINE. [Concomitant]
     Active Substance: RANITIDINE
     Dosage: 50 MG WAS ADMINISTERED IN 30 MIN, UNK
     Route: 042
  8. BLINCYTO [Suspect]
     Active Substance: BLINATUMOMAB
     Indication: ACUTE LYMPHOCYTIC LEUKAEMIA RECURRENT
     Dosage: 9 MCG/ML (27 MCG IN 250 ML OF NORMAL SALINE SOLUTION FOR 72 HOURS AT 3.4 ML/H), UNK
     Route: 042
     Dates: start: 20190131, end: 20190201
  9. HYDROXYZINE [Concomitant]
     Active Substance: HYDROXYZINE HYDROCHLORIDE
     Dosage: 50 MG, UNK
     Route: 048

REACTIONS (13)
  - Pain [Unknown]
  - Death [Fatal]
  - Bladder sphincter atony [Unknown]
  - Discomfort [Unknown]
  - Adverse event [Unknown]
  - Cytokine release syndrome [Unknown]
  - Gingival pain [Unknown]
  - Haemorrhage [Unknown]
  - Hyperglycaemia [Unknown]
  - Constipation [Unknown]
  - Cardiac arrest [Unknown]
  - Pupils unequal [Unknown]
  - Seizure [Unknown]

NARRATIVE: CASE EVENT DATE: 20190131
